FAERS Safety Report 7866688-8 (Version None)
Quarter: 2011Q4

REPORT INFORMATION
  Report Type: 
  Country: None (occurrence: None)
  Receive Date: 20111028
  Receipt Date: 20111013
  Transmission Date: 20120403
  Serious: Yes (Other)
  Sender: FDA-Public Use
  Company Number: ES-COVIDIEN/TYCO HEALTHCARE/MALLINCKRODT-T201102269

PATIENT
  Age: 70 Year
  Sex: Male

DRUGS (2)
  1. EXALGO [Suspect]
     Indication: BONE PAIN
     Dosage: UNK UNK, QD
     Route: 048
  2. EXALGO [Suspect]
     Dosage: UNK, QOD

REACTIONS (1)
  - RECTAL PROLAPSE [None]
